FAERS Safety Report 16761434 (Version 1)
Quarter: 2019Q3

REPORT INFORMATION
  Report Type: Report from Study
  Country: GB (occurrence: GB)
  Receive Date: 20190830
  Receipt Date: 20190830
  Transmission Date: 20191005
  Serious: No
  Sender: FDA-Public Use
  Company Number: GB-ROCHE-2387600

PATIENT
  Sex: Female

DRUGS (1)
  1. OCREVUS [Suspect]
     Active Substance: OCRELIZUMAB
     Indication: RELAPSING-REMITTING MULTIPLE SCLEROSIS
     Route: 041
     Dates: start: 20190219

REACTIONS (2)
  - Oral herpes [Recovering/Resolving]
  - Nasal herpes [Recovering/Resolving]

NARRATIVE: CASE EVENT DATE: 20190301
